FAERS Safety Report 11265463 (Version 1)
Quarter: 2015Q3

REPORT INFORMATION
  Report Type: Spontaneous
  Country: US (occurrence: None)
  Receive Date: 20150710
  Receipt Date: 20150710
  Transmission Date: 20151125
  Serious: Yes (Other)
  Sender: FDA-Public Use
  Company Number: None

PATIENT
  Age: 73 Year
  Weight: 48.99 kg

DRUGS (6)
  1. MULTI IT [Concomitant]
  2. PROLIA [Suspect]
     Active Substance: DENOSUMAB
     Indication: OSTEOPOROSIS
     Dosage: Q 6 MONTHS; SQ IN DELTOID
     Route: 058
  3. CLIMARA [Concomitant]
     Active Substance: ESTRADIOL
  4. D3 SUPPLEMENT [Concomitant]
  5. VIT K2 SUPPLEMENT [Concomitant]
  6. KLONOPIN [Concomitant]
     Active Substance: CLONAZEPAM

REACTIONS (16)
  - Blister [None]
  - Stomatitis [None]
  - Red blood cells urine [None]
  - Back pain [None]
  - Skin burning sensation [None]
  - Myalgia [None]
  - Neck pain [None]
  - Rash pruritic [None]
  - Groin pain [None]
  - Quality of life decreased [None]
  - Nipple pain [None]
  - Oral discomfort [None]
  - Vision blurred [None]
  - Headache [None]
  - Fatigue [None]
  - Asthenia [None]
